FAERS Safety Report 7239701-9 (Version None)
Quarter: 2011Q1

REPORT INFORMATION
  Report Type: 
  Country: None (occurrence: None)
  Receive Date: 20110122
  Receipt Date: 20101019
  Transmission Date: 20110831
  Serious: No
  Sender: FDA-Public Use
  Company Number: US-ALLERGAN-1013399US

PATIENT
  Age: 67 Year
  Sex: Female

DRUGS (4)
  1. SYNTHROID [Concomitant]
     Indication: HYPOTHYROIDISM
     Dosage: UNK
  2. HORMONE REPLACEMENT [Concomitant]
     Indication: POSTMENOPAUSE
     Dosage: UNK
  3. LATISSE [Suspect]
     Dosage: 1 GTT, QOD
     Dates: start: 20101019
  4. LATISSE [Suspect]
     Indication: GROWTH OF EYELASHES
     Dosage: 1 GTT, QHS
     Route: 061
     Dates: start: 20091001, end: 20100901

REACTIONS (4)
  - WRONG TECHNIQUE IN DRUG USAGE PROCESS [None]
  - BLEPHARITIS [None]
  - MADAROSIS [None]
  - SKIN HYPERPIGMENTATION [None]
